FAERS Safety Report 8158752-3 (Version None)
Quarter: 2012Q1

REPORT INFORMATION
  Report Type: 
  Country: None (occurrence: None)
  Receive Date: 20120223
  Receipt Date: 20120217
  Transmission Date: 20120608
  Serious: Yes (Other)
  Sender: FDA-Public Use
  Company Number: JP-PFIZER INC-2012043791

PATIENT
  Age: 60 Year
  Sex: Female

DRUGS (1)
  1. SULFASALAZINE [Suspect]
     Dosage: UNK
     Route: 048
     Dates: start: 20110601, end: 20110601

REACTIONS (1)
  - DRUG ERUPTION [None]
